FAERS Safety Report 8313122 (Version 4)
Quarter: 2012Q4

REPORT INFORMATION
  Report Type: 
  Country: BR (occurrence: BR)
  Receive Date: 20111228
  Receipt Date: 20120907
  Transmission Date: 20130627
  Serious: Yes (Hospitalization, Other)
  Sender: FDA-Public Use
  Company Number: BR-BRISTOL-MYERS SQUIBB COMPANY-16307803

PATIENT
  Age: 45 Year
  Sex: Female

DRUGS (3)
  1. ORENCIA FOR INJ [Suspect]
     Indication: RHEUMATOID ARTHRITIS
     Dosage: Inf:9
Therapy dt:05AUG,12SEP,24OCT11,4Jan12,3Feb,05Mar,13Mar,20Apr,29May.30Jul12
Inter on Nov11
     Route: 042
     Dates: start: 20110805
  2. METHOTREXATE [Concomitant]
  3. METICORTEN [Concomitant]

REACTIONS (7)
  - Cholelithiasis [Unknown]
  - Menstruation irregular [Recovering/Resolving]
  - Pain in extremity [Unknown]
  - Gait disturbance [Unknown]
  - Arthralgia [Recovered/Resolved]
  - Joint swelling [Unknown]
  - Gingival infection [Unknown]
